FAERS Safety Report 24014191 (Version 2)
Quarter: 2024Q3

REPORT INFORMATION
  Report Type: Spontaneous
  Country: US (occurrence: US)
  Receive Date: 20240626
  Receipt Date: 20240702
  Transmission Date: 20241017
  Serious: Yes (Other)
  Sender: ACCORD
  Company Number: US-Accord-431623

PATIENT
  Age: 66 Year
  Sex: Female

DRUGS (1)
  1. MYCOPHENOLATE MOFETIL [Suspect]
     Active Substance: MYCOPHENOLATE MOFETIL
     Indication: Systemic lupus erythematosus
     Dosage: DOSE REDUCED FROM 3 IN THE MORNING AND 2 AT NIGHT TO 2 IN THE MORNING AND 1 AT NIGHT
     Dates: start: 202312, end: 20231226

REACTIONS (12)
  - Foreign body in throat [Unknown]
  - Rash [Not Recovered/Not Resolved]
  - Blister [Recovered/Resolved]
  - Cellulitis [Unknown]
  - Foaming at mouth [Unknown]
  - Pruritus [Recovered/Resolved]
  - Scab [Recovered/Resolved]
  - Sinus disorder [Unknown]
  - Arthralgia [Unknown]
  - Overdose [Unknown]
  - Weight increased [Unknown]
  - Loss of personal independence in daily activities [Unknown]

NARRATIVE: CASE EVENT DATE: 20231201
